FAERS Safety Report 22038814 (Version 1)
Quarter: 2023Q1

REPORT INFORMATION
  Report Type: Spontaneous
  Country: FR (occurrence: FR)
  Receive Date: 20230227
  Receipt Date: 20230227
  Transmission Date: 20230418
  Serious: Yes (Life-Threatening, Hospitalization, Other)
  Sender: FDA-Public Use
  Company Number: FR-ALKEM LABORATORIES LIMITED-FR-ALKEM-2022-14340

PATIENT
  Age: 55 Year
  Sex: Male

DRUGS (1)
  1. DRONABINOL [Suspect]
     Active Substance: DRONABINOL
     Indication: Neuralgia
     Dosage: 420 CAPSULES OF 2.5 MG (MARINOL 2.5 MG, CAPSULE SOFT MOLLE)
     Route: 065

REACTIONS (2)
  - Suicide attempt [Unknown]
  - Vomiting [Recovered/Resolved]
